FAERS Safety Report 7492010-5 (Version None)
Quarter: 2011Q2

REPORT INFORMATION
  Report Type: 
  Country: None (occurrence: None)
  Receive Date: 20110519
  Receipt Date: 20110510
  Transmission Date: 20111010
  Serious: Yes (Hospitalization)
  Sender: FDA-Public Use
  Company Number: US-B.I. PHARMACEUTICALS,INC./RIDGEFIELD-2011-BP-12711BP

PATIENT
  Sex: Male

DRUGS (12)
  1. PRADAXA [Suspect]
     Indication: ATRIAL FIBRILLATION
     Dosage: 300 MG
     Route: 048
     Dates: start: 20101101, end: 20110501
  2. FLAXSEED [Concomitant]
     Indication: VITAMIN SUPPLEMENTATION
     Route: 048
     Dates: start: 20090522
  3. PROVIGIL [Concomitant]
     Indication: NARCOLEPSY
     Route: 048
     Dates: start: 20070821
  4. SOTALOL HCL [Concomitant]
     Indication: ATRIAL FIBRILLATION
     Route: 048
     Dates: start: 20070808
  5. VIT D [Concomitant]
     Indication: VITAMIN SUPPLEMENTATION
     Route: 048
     Dates: start: 20100601
  6. ASPIRIN [Suspect]
     Indication: CEREBROVASCULAR ACCIDENT
     Dosage: 81 MG
     Route: 048
     Dates: start: 20101223
  7. CELEBREX [Concomitant]
     Indication: HEMICEPHALALGIA
     Route: 048
     Dates: start: 20110419
  8. NTG QUICK [Concomitant]
     Indication: ANGINA PECTORIS
     Route: 060
     Dates: start: 20070112
  9. PRADAXA [Suspect]
     Dosage: 300 MG
     Route: 048
     Dates: start: 20110501
  10. LAMICTAL [Concomitant]
     Indication: HEMICEPHALALGIA
     Route: 048
     Dates: start: 20110402
  11. SIMVASTATIN [Concomitant]
     Indication: DYSLIPIDAEMIA
     Route: 048
     Dates: start: 20080608
  12. NEXIUM [Concomitant]
     Indication: GASTROOESOPHAGEAL REFLUX DISEASE
     Route: 048
     Dates: start: 20090422

REACTIONS (9)
  - HAEMATOCRIT DECREASED [None]
  - HYDRONEPHROSIS [None]
  - INTERNATIONAL NORMALISED RATIO [None]
  - NEPHROLITHIASIS [None]
  - RENAL COLIC [None]
  - CALCULUS URETERIC [None]
  - RED BLOOD CELL COUNT DECREASED [None]
  - HAEMOGLOBIN DECREASED [None]
  - PYELONEPHRITIS [None]
